FAERS Safety Report 11444981 (Version 1)
Quarter: 2015Q3

REPORT INFORMATION
  Report Type: Spontaneous
  Country: US (occurrence: None)
  Receive Date: 20150831
  Receipt Date: 20150831
  Transmission Date: 20151125
  Serious: No
  Sender: FDA-Public Use
  Company Number: None

PATIENT
  Age: 57 Year
  Sex: Female
  Weight: 161.03 kg

DRUGS (14)
  1. EXCEEDRIN EXTRA STRENGTH [Concomitant]
  2. TRAMADOL. [Concomitant]
     Active Substance: TRAMADOL
  3. MOTRIN IB [Concomitant]
     Active Substance: IBUPROFEN
  4. RANITIDINE [Concomitant]
     Active Substance: RANITIDINE\RANITIDINE HYDROCHLORIDE
  5. VICTOZA [Suspect]
     Active Substance: LIRAGLUTIDE
     Indication: OBESITY
     Dosage: .6MG, 1.2MG, 1.8MG; GIVEN INTO/UNDER THE SKIN
     Dates: start: 20150729, end: 20150812
  6. METFORMIN HCL [Concomitant]
     Active Substance: METFORMIN HYDROCHLORIDE
  7. VITAMIN D2 [Concomitant]
     Active Substance: ERGOCALCIFEROL
  8. SAXENDA [Suspect]
     Active Substance: LIRAGLUTIDE
     Indication: OBESITY
     Dosage: GIVEN INTO/UNDER THE SKIN
     Dates: start: 20150822, end: 20150827
  9. VICTOZA [Suspect]
     Active Substance: LIRAGLUTIDE
     Indication: TYPE 2 DIABETES MELLITUS
     Dosage: .6MG, 1.2MG, 1.8MG; GIVEN INTO/UNDER THE SKIN
     Dates: start: 20150729, end: 20150812
  10. SAXENDA [Suspect]
     Active Substance: LIRAGLUTIDE
     Indication: WEIGHT DECREASED
     Dosage: GIVEN INTO/UNDER THE SKIN
     Dates: start: 20150822, end: 20150827
  11. BYSTOLIC [Concomitant]
     Active Substance: NEBIVOLOL HYDROCHLORIDE
  12. ALEVE [Concomitant]
     Active Substance: NAPROXEN SODIUM
  13. FLEXERIL [Concomitant]
     Active Substance: CYCLOBENZAPRINE HYDROCHLORIDE
  14. CHLORPHENIRAMINE MALEATE (CHLORTABS) [Concomitant]

REACTIONS (1)
  - Dysphonia [None]

NARRATIVE: CASE EVENT DATE: 20150827
